FAERS Safety Report 20258876 (Version 1)
Quarter: 2021Q4

REPORT INFORMATION
  Report Type: Spontaneous
  Country: US (occurrence: None)
  Receive Date: 20211230
  Receipt Date: 20211230
  Transmission Date: 20220303
  Serious: No
  Sender: FDA-Public Use
  Company Number: None

PATIENT
  Age: 67 Year
  Sex: Female
  Weight: 63.5 kg

DRUGS (2)
  1. BAMLANIVIMAB\ETESEVIMAB [Suspect]
     Active Substance: BAMLANIVIMAB\ETESEVIMAB
     Indication: COVID-19
     Dosage: OTHER FREQUENCY : ONCE;?
     Route: 041
     Dates: start: 20211229, end: 20211229
  2. bamlaminivab/etesevimab [Concomitant]
     Dates: start: 20211229, end: 20211229

REACTIONS (8)
  - Feeling hot [None]
  - Feeling abnormal [None]
  - Oxygen saturation decreased [None]
  - Heart rate increased [None]
  - Infusion related reaction [None]
  - Dyspnoea [None]
  - Chest discomfort [None]
  - Discomfort [None]

NARRATIVE: CASE EVENT DATE: 20211229
